FAERS Safety Report 5388151-9 (Version None)
Quarter: 2007Q3

REPORT INFORMATION
  Report Type: 
  Country: None (occurrence: None)
  Receive Date: 20070716
  Receipt Date: 20061222
  Transmission Date: 20080115
  Serious: No
  Sender: FDA-Public Use
  Company Number: A0632424A

PATIENT
  Age: 39 Year
  Sex: Male

DRUGS (1)
  1. NICORETTE (MINT) [Suspect]
     Indication: DRUG WITHDRAWAL MAINTENANCE THERAPY
     Dates: start: 20061216, end: 20061216

REACTIONS (3)
  - CHEST PAIN [None]
  - INTENTIONAL DRUG MISUSE [None]
  - PHARMACEUTICAL PRODUCT COMPLAINT [None]
